FAERS Safety Report 11490033 (Version 7)
Quarter: 2020Q1

REPORT INFORMATION
  Report Type: Report from Study
  Country: DE (occurrence: DE)
  Receive Date: 20150910
  Receipt Date: 20200320
  Transmission Date: 20200409
  Serious: Yes (Other)
  Sender: FDA-Public Use
  Company Number: PHHY2015DE042432

PATIENT
  Age: 43 Year
  Sex: Female

DRUGS (1)
  1. GILENYA [Suspect]
     Active Substance: FINGOLIMOD HYDROCHLORIDE
     Indication: MULTIPLE SCLEROSIS
     Dosage: QD
     Route: 048
     Dates: start: 20150209

REACTIONS (17)
  - Urinary tract infection [Recovered/Resolved]
  - Taste disorder [Recovered/Resolved]
  - Arthralgia [Recovered/Resolved]
  - Iron deficiency [Unknown]
  - Iron deficiency anaemia [Recovered/Resolved]
  - Onychomycosis [Unknown]
  - Lymphocyte count increased [Unknown]
  - Blood alkaline phosphatase decreased [Unknown]
  - White blood cell count increased [Recovered/Resolved]
  - Diarrhoea [Unknown]
  - Haemoglobinaemia [Unknown]
  - Cognitive disorder [Unknown]
  - Vitamin D deficiency [Recovered/Resolved]
  - Lymphopenia [Unknown]
  - Pruritus [Recovered/Resolved]
  - High density lipoprotein increased [Unknown]
  - Nasopharyngitis [Recovered/Resolved]

NARRATIVE: CASE EVENT DATE: 20150209
